FAERS Safety Report 26066223 (Version 1)
Quarter: 2025Q4

REPORT INFORMATION
  Report Type: Spontaneous
  Country: CN (occurrence: CN)
  Receive Date: 20251119
  Receipt Date: 20251119
  Transmission Date: 20260118
  Serious: Yes (Other)
  Sender: PFIZER
  Company Number: CN-PFIZER INC-PV202500135022

PATIENT
  Age: 51 Year
  Sex: Female
  Weight: 50 kg

DRUGS (1)
  1. INLYTA [Suspect]
     Active Substance: AXITINIB
     Indication: Targeted cancer therapy
     Dosage: 5 MG, 2X/DAY
     Route: 048
     Dates: start: 20251016, end: 20251107

REACTIONS (3)
  - Rash [Unknown]
  - Pruritus [Unknown]
  - Face oedema [Unknown]

NARRATIVE: CASE EVENT DATE: 20251107
